FAERS Safety Report 7659968-2 (Version None)
Quarter: 2011Q3

REPORT INFORMATION
  Report Type: 
  Country: None (occurrence: None)
  Receive Date: 20110805
  Receipt Date: 20110726
  Transmission Date: 20111222
  Serious: Yes (Death)
  Sender: FDA-Public Use
  Company Number: DE-PURDUE-GBR-2011-0008579

PATIENT
  Age: 64 Year
  Sex: Male
  Weight: 75 kg

DRUGS (1)
  1. NON-PMN TRAMADOL [Suspect]
     Indication: PRODUCT USED FOR UNKNOWN INDICATION
     Route: 042

REACTIONS (2)
  - ORGAN FAILURE [None]
  - TOXICITY TO VARIOUS AGENTS [None]
